FAERS Safety Report 14255083 (Version 1)
Quarter: 2017Q4

REPORT INFORMATION
  Report Type: Other
  Country: DK (occurrence: DK)
  Receive Date: 20171206
  Receipt Date: 20171206
  Transmission Date: 20180321
  Serious: Yes (Hospitalization)
  Sender: FDA-Public Use
  Company Number: DK-ASTELLAS-2017US050444

PATIENT
  Age: 93 Year
  Sex: Female

DRUGS (10)
  1. KALEORID [Concomitant]
     Active Substance: POTASSIUM CHLORIDE
     Indication: MINERAL SUPPLEMENTATION
     Route: 048
     Dates: start: 20140521
  2. PAMOL [Concomitant]
     Active Substance: ACETAMINOPHEN
     Indication: PAIN
     Dosage: 500 MG, AS NEEDED (MAXIMUM DOSE WAS 8)
     Route: 048
     Dates: start: 20160527
  3. TRIMOPAN [Concomitant]
     Indication: PROPHYLAXIS URINARY TRACT INFECTION
     Route: 048
     Dates: start: 20170911
  4. ELTROXIN [Concomitant]
     Active Substance: LEVOTHYROXINE
     Indication: HYPOMETABOLISM
     Route: 048
     Dates: start: 20140402
  5. FURIX [Concomitant]
     Active Substance: FUROSEMIDE
     Indication: DIURETIC THERAPY
     Route: 048
     Dates: start: 20140521, end: 20171110
  6. VIBEDEN [Concomitant]
     Indication: VITAMIN SUPPLEMENTATION
     Dosage: 1 DF, EVERY 3 MONTHS
     Route: 030
     Dates: start: 20140626
  7. MIRABEGRON [Suspect]
     Active Substance: MIRABEGRON
     Indication: MICTURITION URGENCY
     Route: 048
     Dates: start: 20151020
  8. ELIQUIS [Concomitant]
     Active Substance: APIXABAN
     Indication: THROMBOSIS PROPHYLAXIS
     Route: 048
     Dates: start: 20140520
  9. JERN C [Concomitant]
     Indication: MINERAL SUPPLEMENTATION
     Dosage: 1 DF (100+60 MG STREGNTH), ONCE DAILY
     Route: 048
     Dates: start: 20170607
  10. CORODIL [Concomitant]
     Indication: HYPERTENSION
     Route: 048
     Dates: start: 20160404, end: 20171110

REACTIONS (4)
  - Dysuria [Unknown]
  - Cystitis [Not Recovered/Not Resolved]
  - Pollakiuria [Unknown]
  - Bladder pain [Unknown]

NARRATIVE: CASE EVENT DATE: 201710
